FAERS Safety Report 15842860 (Version 1)
Quarter: 2019Q1

REPORT INFORMATION
  Report Type: Spontaneous
  Country: NO (occurrence: NO)
  Receive Date: 20190118
  Receipt Date: 20190118
  Transmission Date: 20190417
  Serious: Yes (Death)
  Sender: FDA-Public Use
  Company Number: NO-PFIZER INC-2019020915

PATIENT
  Sex: Female

DRUGS (3)
  1. DOLCONTIN [Suspect]
     Active Substance: MORPHINE
     Dosage: UNKNOWN
  2. METADON DNE [Suspect]
     Active Substance: METHADONE HYDROCHLORIDE
     Dosage: UNKNOWN. TWO BOTTLES FOUND IN APARTMENT WHERE PATIENT DIED
  3. XANOR [Suspect]
     Active Substance: ALPRAZOLAM
     Dosage: UNKNOWN

REACTIONS (1)
  - Overdose [Fatal]

NARRATIVE: CASE EVENT DATE: 20181211
